FAERS Safety Report 5153930-X (Version None)
Quarter: 2006Q4

REPORT INFORMATION
  Report Type: 
  Country: None (occurrence: None)
  Receive Date: 20061120
  Receipt Date: 20061114
  Transmission Date: 20070319
  Serious: Yes (Hospitalization)
  Sender: FDA-Public Use
  Company Number: JP-BAYER-200615766GDS

PATIENT
  Age: 44 Year
  Sex: Male
  Weight: 63 kg

DRUGS (6)
  1. CIPROXAN IV [Suspect]
     Indication: PNEUMONIA PRIMARY ATYPICAL
     Route: 042
  2. CEFPIROME [Suspect]
     Indication: DRUG USE FOR UNKNOWN INDICATION
     Route: 042
  3. MINOCYCLINE HCL [Suspect]
     Indication: DRUG USE FOR UNKNOWN INDICATION
     Route: 042
  4. MINOCYCLINE HCL [Suspect]
     Route: 042
     Dates: start: 20030626
  5. ERYTHROMYCIN [Suspect]
     Indication: DRUG USE FOR UNKNOWN INDICATION
     Route: 048
     Dates: start: 20030620
  6. CILASTATIN W/IMIPENEM [Suspect]
     Indication: DRUG USE FOR UNKNOWN INDICATION
     Route: 065
     Dates: start: 20030623

REACTIONS (6)
  - CANDIDIASIS [None]
  - EOSINOPHILIC PNEUMONIA [None]
  - ESCHERICHIA INFECTION [None]
  - RHEUMATOID FACTOR INCREASED [None]
  - STREPTOCOCCAL INFECTION [None]
  - THERAPY NON-RESPONDER [None]
